FAERS Safety Report 4493438-8 (Version None)
Quarter: 2004Q4

REPORT INFORMATION
  Report Type: 
  Country: None (occurrence: None)
  Receive Date: 20041102
  Receipt Date: 20041015
  Transmission Date: 20050328
  Serious: Yes (Death, Hospitalization)
  Sender: FDA-Public Use
  Company Number: A0413828A

PATIENT
  Age: 66 Year
  Sex: Female
  Weight: 78.9259 kg

DRUGS (15)
  1. AVANDIA [Suspect]
     Indication: DIABETES MELLITUS NON-INSULIN-DEPENDENT
     Dosage: ORAL
     Route: 048
  2. ASPIRIN [Concomitant]
  3. FRUSEMIDE [Concomitant]
  4. METOLAZONE [Concomitant]
  5. METOCLOPRAMIDE HCL [Concomitant]
  6. ATORVASTATIN CALCIUM [Concomitant]
  7. ISOSORBIDE MONONITRATE [Concomitant]
  8. METOPROLOL TARTRATE [Concomitant]
  9. GLIPIZIDE [Concomitant]
  10. HUMAN INT/LONG INSULIN [Concomitant]
  11. WARFARIN SODIUM [Concomitant]
  12. GLIPIZIDE [Concomitant]
  13. RANITIDINE HYDROCHLORIDE [Concomitant]
  14. METOCLOPRAMIDE HCL [Concomitant]
  15. ATORVASTATIN CALCIUM [Concomitant]

REACTIONS (27)
  - ACUTE MYOCARDIAL INFARCTION [None]
  - ANAEMIA [None]
  - ATHEROSCLEROSIS [None]
  - BLOOD UREA INCREASED [None]
  - BRONCHITIS [None]
  - CARDIAC FAILURE CHRONIC [None]
  - CARDIOMEGALY [None]
  - CARDIOMYOPATHY [None]
  - CHOLELITHIASIS [None]
  - CORONARY ARTERY DISEASE [None]
  - DIABETES MELLITUS INSULIN-DEPENDENT [None]
  - FLUID OVERLOAD [None]
  - FLUID RETENTION [None]
  - GENERALISED OEDEMA [None]
  - HEART INJURY [None]
  - HEPATIC FAILURE [None]
  - HEPATOCELLULAR DAMAGE [None]
  - HYPERCHOLESTEROLAEMIA [None]
  - HYPOKALAEMIC SYNDROME [None]
  - MICROCYTIC ANAEMIA [None]
  - OEDEMA PERIPHERAL [None]
  - PERIPHERAL VASCULAR DISORDER [None]
  - PROTHROMBIN TIME PROLONGED [None]
  - RESPIRATORY ARREST [None]
  - RESPIRATORY DISTRESS [None]
  - VENTRICULAR DYSFUNCTION [None]
  - VENTRICULAR EXTRASYSTOLES [None]
